FAERS Safety Report 22632458 (Version 2)
Quarter: 2023Q2

REPORT INFORMATION
  Report Type: Report from Study
  Country: IN (occurrence: IN)
  Receive Date: 20230623
  Receipt Date: 20230623
  Transmission Date: 20230721
  Serious: Yes (Other)
  Sender: FDA-Public Use
  Company Number: IN-002147023-NVSC2023IN140274

PATIENT
  Age: 35 Year
  Sex: Male

DRUGS (2)
  1. SIMULECT [Suspect]
     Active Substance: BASILIXIMAB
     Indication: Renal transplant
     Dosage: 20 MG
     Route: 042
     Dates: start: 20230511, end: 20230511
  2. SIMULECT [Suspect]
     Active Substance: BASILIXIMAB
     Dosage: 20 MG
     Route: 042
     Dates: start: 20230515

REACTIONS (4)
  - Transplant dysfunction [Unknown]
  - Kidney transplant rejection [Unknown]
  - Renal tubular injury [Unknown]
  - Blood creatine increased [Unknown]

NARRATIVE: CASE EVENT DATE: 20230517
